FAERS Safety Report 5386249-2 (Version None)
Quarter: 2007Q3

REPORT INFORMATION
  Report Type: 
  Country: None (occurrence: None)
  Receive Date: 20070713
  Receipt Date: 20070705
  Transmission Date: 20080115
  Serious: Yes (Other)
  Sender: FDA-Public Use
  Company Number: PHBS2007NL10069

PATIENT
  Age: 17 Year
  Sex: Female
  Weight: 64 kg

DRUGS (2)
  1. FAMVIR [Suspect]
     Indication: KERATITIS HERPETIC
     Dosage: 500 MG, TID
     Route: 048
     Dates: start: 20070318, end: 20070324
  2. IBUPROFEN [Concomitant]
     Dosage: 400 MG, UNK
     Dates: start: 20070315, end: 20070324

REACTIONS (10)
  - ALANINE AMINOTRANSFERASE INCREASED [None]
  - ASPARTATE AMINOTRANSFERASE INCREASED [None]
  - BLOOD ALKALINE PHOSPHATASE INCREASED [None]
  - CHROMATURIA [None]
  - FATIGUE [None]
  - GAMMA-GLUTAMYLTRANSFERASE INCREASED [None]
  - HEPATITIS [None]
  - HYPERHIDROSIS [None]
  - SYNCOPE [None]
  - VISUAL DISTURBANCE [None]
